FAERS Safety Report 6401281-5 (Version None)
Quarter: 2009Q4

REPORT INFORMATION
  Report Type: 
  Country: None (occurrence: None)
  Receive Date: 20091015
  Receipt Date: 20091001
  Transmission Date: 20100525
  Serious: Yes (Other)
  Sender: FDA-Public Use
  Company Number: PHHY2009PL42625

PATIENT
  Sex: Female
  Weight: 72 kg

DRUGS (4)
  1. GLEEVEC [Suspect]
     Indication: CHRONIC MYELOID LEUKAEMIA
     Dosage: 400 MG, UNK
     Route: 048
     Dates: start: 20080227, end: 20090126
  2. TARDYFERON-FOL [Concomitant]
  3. KALIPOZ [Concomitant]
  4. FUROSEMIDE [Concomitant]

REACTIONS (4)
  - HEAD INJURY [None]
  - PANCYTOPENIA [None]
  - SUBDURAL HAEMATOMA [None]
  - THROMBOCYTOPENIA [None]
